FAERS Safety Report 4394392-X (Version None)
Quarter: 2004Q3

REPORT INFORMATION
  Report Type: 
  Country: None (occurrence: None)
  Receive Date: 20040709
  Receipt Date: 20040709
  Transmission Date: 20050211
  Serious: Yes (Other)
  Sender: FDA-Public Use
  Company Number: None

PATIENT
  Age: 39 Year
  Sex: Female
  Weight: 61.2356 kg

DRUGS (1)
  1. CELEXA [Suspect]
     Dosage: 1 DAY

REACTIONS (4)
  - CONSTIPATION [None]
  - LOSS OF LIBIDO [None]
  - TREATMENT NONCOMPLIANCE [None]
  - WEIGHT INCREASED [None]
